FAERS Safety Report 6546167-0 (Version None)
Quarter: 2010Q1

REPORT INFORMATION
  Report Type: 
  Country: None (occurrence: None)
  Receive Date: 20100114
  Receipt Date: 20100106
  Transmission Date: 20100710
  Serious: Yes (Hospitalization, Other)
  Sender: FDA-Public Use
  Company Number: THYM-1001336

PATIENT
  Age: 22 Year
  Sex: Male

DRUGS (6)
  1. THYMOGLOBULIN [Suspect]
     Indication: RENAL TRANSPLANT
     Dosage: 1.25 MG/KG, QD; INTRAVENOUS
     Route: 042
     Dates: start: 20000101, end: 20000101
  2. TACROLIMUS [Suspect]
     Indication: PROPHYLAXIS AGAINST TRANSPLANT REJECTION
     Dosage: 3 MG, BID; 0.5 MG, QD
  3. CYCLOSPORINE [Concomitant]
  4. MYCOPHENOLATE MOFETIL [Concomitant]
  5. PREDNISOLONE [Concomitant]
  6. METHYLPREDNISOLONE [Concomitant]

REACTIONS (2)
  - EPSTEIN-BARR VIRUS ASSOCIATED LYMPHOPROLIFERATIVE DISORDER [None]
  - RENAL FAILURE CHRONIC [None]
